FAERS Safety Report 8813956 (Version 2)
Quarter: 2015Q2

REPORT INFORMATION
  Report Type: Report from Study
  Country: US (occurrence: US)
  Receive Date: 20120928
  Receipt Date: 20150619
  Transmission Date: 20150821
  Serious: Yes (Death)
  Sender: FDA-Public Use
  Company Number: US-ROCHE-1103558

PATIENT
  Age: 42 Year
  Sex: Female

DRUGS (14)
  1. BENADRYL [Concomitant]
     Active Substance: DIPHENHYDRAMINE HYDROCHLORIDE
     Route: 065
  2. HERCEPTIN [Suspect]
     Active Substance: TRASTUZUMAB
     Route: 042
  3. ZOMETA [Concomitant]
     Active Substance: ZOLEDRONIC ACID
  4. CISPLATIN. [Concomitant]
     Active Substance: CISPLATIN
  5. TAXOTERE [Concomitant]
     Active Substance: DOCETAXEL
  6. HERCEPTIN [Suspect]
     Active Substance: TRASTUZUMAB
     Indication: BREAST CANCER FEMALE
     Dosage: 181 MAINTAINENCE DOSE
     Route: 042
     Dates: start: 20050401
  7. GEMZAR [Concomitant]
     Active Substance: GEMCITABINE HYDROCHLORIDE
  8. NAVELBINE [Concomitant]
     Active Substance: VINORELBINE TARTRATE
  9. DECADRON [Concomitant]
     Active Substance: DEXAMETHASONE
     Route: 065
  10. CYTOXAN [Concomitant]
     Active Substance: CYCLOPHOSPHAMIDE
  11. TAXOL [Concomitant]
     Active Substance: PACLITAXEL
  12. AVASTIN [Suspect]
     Active Substance: BEVACIZUMAB
     Indication: BREAST CANCER FEMALE
     Route: 065
  13. XELODA [Concomitant]
     Active Substance: CAPECITABINE
     Route: 065
  14. ADRIAMYCIN [Concomitant]
     Active Substance: DOXORUBICIN HYDROCHLORIDE

REACTIONS (8)
  - Dyspnoea [Unknown]
  - Metastases to pleura [Unknown]
  - Metastases to lung [Unknown]
  - Cough [Recovering/Resolving]
  - Death [Fatal]
  - Off label use [Unknown]
  - Fatigue [Unknown]
  - Metastases to bone [Unknown]

NARRATIVE: CASE EVENT DATE: 200709
